FAERS Safety Report 14917806 (Version 1)
Quarter: 2018Q2

REPORT INFORMATION
  Report Type: Spontaneous
  Country: CA (occurrence: CA)
  Receive Date: 20180521
  Receipt Date: 20180521
  Transmission Date: 20180711
  Serious: Yes (Hospitalization)
  Sender: FDA-Public Use
  Company Number: CA-APOTEX-2018AP013718

PATIENT

DRUGS (3)
  1. ESOMEPRAZOLE [Suspect]
     Active Substance: ESOMEPRAZOLE
     Indication: GASTROOESOPHAGEAL REFLUX DISEASE
     Dosage: 1 DF, QD
     Route: 065
     Dates: start: 20180409, end: 20180427
  2. ESOMEPRAZOLE [Suspect]
     Active Substance: ESOMEPRAZOLE
     Dosage: UNK UNK, BID
     Route: 065
     Dates: start: 20180428
  3. RANITIDINE. [Suspect]
     Active Substance: RANITIDINE
     Indication: GASTROOESOPHAGEAL REFLUX DISEASE
     Dosage: UNK
     Route: 065

REACTIONS (4)
  - Dyspnoea [Recovered/Resolved]
  - Drug ineffective [Unknown]
  - Condition aggravated [Recovered/Resolved]
  - Product taste abnormal [Unknown]

NARRATIVE: CASE EVENT DATE: 20180428
